FAERS Safety Report 14447996 (Version 1)
Quarter: 2018Q1

REPORT INFORMATION
  Report Type: Report from Study
  Country: US (occurrence: US)
  Receive Date: 20180126
  Receipt Date: 20180126
  Transmission Date: 20180509
  Serious: Yes (Hospitalization, Other)
  Sender: FDA-Public Use
  Company Number: US-SHIRE-US201720124

PATIENT
  Age: 56 Year
  Sex: Female
  Weight: 95.1 kg

DRUGS (1)
  1. RECOMBINANT HUMAN PARATHYROID HORMONE (RHPTH) [Suspect]
     Active Substance: PARATHYROID HORMONE
     Indication: OSTEOPOROSIS
     Dosage: 50 ?G, 1X/DAY:QD
     Route: 058
     Dates: start: 20170717

REACTIONS (1)
  - Endocarditis [Recovering/Resolving]

NARRATIVE: CASE EVENT DATE: 20170809
